FAERS Safety Report 5367214-8 (Version None)
Quarter: 2007Q2

REPORT INFORMATION
  Report Type: 
  Country: None (occurrence: None)
  Receive Date: 20070622
  Receipt Date: 20070611
  Transmission Date: 20071010
  Serious: Yes (Other)
  Sender: FDA-Public Use
  Company Number: US-ROCHE-501658

PATIENT
  Age: 67 Year
  Sex: Female

DRUGS (4)
  1. BONIVA [Suspect]
     Indication: DRUG USE FOR UNKNOWN INDICATION
     Route: 065
     Dates: start: 20070315
  2. TRAMADOL HCL [Concomitant]
     Dosage: REPORTED AS 50MG 1-2 TABLETS TWICE A DAY WHEN NECESSARY.
  3. MUSCLE RELAXANT [Concomitant]
  4. SYNTHROID [Concomitant]

REACTIONS (3)
  - INTERVERTEBRAL DISC PROTRUSION [None]
  - LETHARGY [None]
  - PAIN IN EXTREMITY [None]
